FAERS Safety Report 19535439 (Version 1)
Quarter: 2021Q3

REPORT INFORMATION
  Report Type: Spontaneous
  Country: NL (occurrence: NL)
  Receive Date: 20210714
  Receipt Date: 20210714
  Transmission Date: 20211014
  Serious: Yes (Other)
  Sender: FDA-Public Use
  Company Number: NL-TEVA-2021-NL-1923183

PATIENT
  Age: 67 Year
  Sex: Female

DRUGS (6)
  1. COLCHICINE TABL O,SMG SAN [Concomitant]
     Dates: start: 20210702, end: 20210708
  2. FLIXOTIDE DISKUS 250MCG 60D [Concomitant]
     Dates: start: 20210610, end: 20210708
  3. HYDROXOCOBALAM INJ 1MG=2ML [Concomitant]
     Dates: start: 20210702, end: 20210708
  4. OMEPRAZOL CAPS MSR 20MG FOC [Concomitant]
     Dates: start: 20210610, end: 20210708
  5. SALBUTAMOL 100 REDIHALER 100MCG/DO SPB 200D+INH [Suspect]
     Active Substance: ALBUTEROL
     Indication: PRODUCT USED FOR UNKNOWN INDICATION
     Dosage: SALBUTAMOL 100 REDIHALER 100 MICROGRAM/DOSIS, AEROSOL, SUSPENSIE?1?6X
     Route: 065
     Dates: start: 20210527
  6. FOLIUMZUUR TABL 0,5MG [Concomitant]

REACTIONS (3)
  - Chest discomfort [Unknown]
  - Incorrect dose administered by device [Unknown]
  - Quality of life decreased [Unknown]

NARRATIVE: CASE EVENT DATE: 20210613
